FAERS Safety Report 5400602-X (Version None)
Quarter: 2007Q3

REPORT INFORMATION
  Report Type: 
  Country: None (occurrence: None)
  Receive Date: 20070730
  Receipt Date: 20070119
  Transmission Date: 20080115
  Serious: No
  Sender: FDA-Public Use
  Company Number: A0636312A

PATIENT
  Age: 43 Year
  Sex: Male

DRUGS (8)
  1. ZANTAC 150 [Suspect]
     Dosage: 150MG AS REQUIRED
     Route: 048
  2. LANTEX [Concomitant]
  3. METFORMIN HCL [Concomitant]
  4. ACTOS [Concomitant]
  5. GLYBURIDE [Concomitant]
  6. LIPITOR [Concomitant]
  7. COZAAR [Concomitant]
  8. MULTI-VITAMIN [Concomitant]

REACTIONS (1)
  - BLOOD GLUCOSE DECREASED [None]
